FAERS Safety Report 6468989-7 (Version None)
Quarter: 2009Q4

REPORT INFORMATION
  Report Type: 
  Country: None (occurrence: None)
  Receive Date: 20091203
  Receipt Date: 20091118
  Transmission Date: 20100525
  Serious: Yes (Hospitalization, Other)
  Sender: FDA-Public Use
  Company Number: PHHY2009JP44986

PATIENT
  Sex: Male

DRUGS (5)
  1. GLEEVEC [Suspect]
     Indication: ACUTE LYMPHOCYTIC LEUKAEMIA
     Dosage: 800 MG/DAY
     Route: 048
     Dates: start: 20071214, end: 20081207
  2. GLEEVEC [Suspect]
     Dosage: 400 MG, UNK
     Route: 048
  3. PREDNISOLONE [Concomitant]
     Dosage: 30 MG/DAY
     Route: 065
     Dates: start: 20081223
  4. PREDNISOLONE [Concomitant]
     Dosage: 25 MG/DAY
  5. DASATINIB [Concomitant]
     Indication: ACUTE LYMPHOCYTIC LEUKAEMIA (IN REMISSION)
     Dosage: 100 MG
     Route: 065

REACTIONS (2)
  - INTERSTITIAL LUNG DISEASE [None]
  - LIVER DISORDER [None]
